FAERS Safety Report 7768648-4 (Version None)
Quarter: 2011Q3

REPORT INFORMATION
  Report Type: 
  Country: None (occurrence: None)
  Receive Date: 20110922
  Receipt Date: 20110311
  Transmission Date: 20111222
  Serious: No
  Sender: FDA-Public Use
  Company Number: US-ASTRAZENECA-2011SE13799

PATIENT
  Age: 45 Year
  Sex: Male

DRUGS (6)
  1. SEROQUEL XR [Suspect]
     Dosage: OCCASIONALLY TAKING 1/4 TABLET DURING THE DAY
     Route: 048
  2. BUSPAR [Concomitant]
  3. SEROQUEL XR [Suspect]
     Indication: ANXIETY
     Route: 048
     Dates: start: 20110201
  4. ZOLOFT [Concomitant]
  5. SEROQUEL XR [Suspect]
     Indication: AFFECTIVE DISORDER
     Route: 048
     Dates: start: 20110201
  6. SEROQUEL XR [Suspect]
     Dosage: OCCASIONALLY TAKING 1/4 TABLET DURING THE DAY
     Route: 048

REACTIONS (2)
  - WRONG TECHNIQUE IN DRUG USAGE PROCESS [None]
  - ANXIETY [None]
